FAERS Safety Report 10606400 (Version 1)
Quarter: 2014Q4

REPORT INFORMATION
  Report Type: Spontaneous
  Country: US (occurrence: None)
  Receive Date: 20141124
  Receipt Date: 20141124
  Transmission Date: 20150529
  Serious: Yes (Hospitalization)
  Sender: FDA-Public Use
  Company Number: None

PATIENT
  Age: 72 Year
  Sex: Male
  Weight: 104 kg

DRUGS (11)
  1. ALOGLIPTIN [Suspect]
     Active Substance: ALOGLIPTIN
     Indication: TYPE 2 DIABETES MELLITUS
     Dosage: RECENT
  2. CARVEDILOL. [Concomitant]
     Active Substance: CARVEDILOL
  3. ZETIA [Concomitant]
     Active Substance: EZETIMIBE
  4. KCL [Concomitant]
     Active Substance: POTASSIUM CHLORIDE
  5. HYDROCHLOROTHIAZIDE W/OLMESARTAN [Concomitant]
     Active Substance: HYDROCHLOROTHIAZIDE\OLMESARTAN MEDOXOMIL
  6. GLIMEPIRIDE. [Concomitant]
     Active Substance: GLIMEPIRIDE
  7. KLONOPIN [Concomitant]
     Active Substance: CLONAZEPAM
  8. MAG OX [Concomitant]
     Active Substance: MAGNESIUM OXIDE
  9. ASA [Concomitant]
     Active Substance: ASPIRIN
  10. CELEXA [Concomitant]
     Active Substance: CITALOPRAM HYDROBROMIDE
  11. APAP [Concomitant]
     Active Substance: ACETAMINOPHEN

REACTIONS (4)
  - Hepatic steatosis [None]
  - Hypomagnesaemia [None]
  - Hypokalaemia [None]
  - Pancreatitis relapsing [None]

NARRATIVE: CASE EVENT DATE: 20140606
